FAERS Safety Report 6004791-8 (Version None)
Quarter: 2008Q4

REPORT INFORMATION
  Report Type: 
  Country: None (occurrence: None)
  Receive Date: 20081216
  Receipt Date: 20081209
  Transmission Date: 20090506
  Serious: Yes (Hospitalization)
  Sender: FDA-Public Use
  Company Number: FR-GILEAD-2008-0019394

PATIENT
  Sex: Male

DRUGS (5)
  1. TRUVADA [Suspect]
     Route: 048
     Dates: start: 20080509, end: 20080521
  2. KALETRA [Suspect]
     Route: 048
     Dates: start: 20080509, end: 20080521
  3. ADIAZINE [Suspect]
     Route: 048
     Dates: start: 20080425, end: 20080523
  4. DIPROSONE [Suspect]
  5. MALOCIDE [Concomitant]
     Dates: start: 20080425

REACTIONS (2)
  - FACE OEDEMA [None]
  - RASH [None]
